FAERS Safety Report 8999750 (Version 2)
Quarter: 2013Q1

REPORT INFORMATION
  Report Type: Spontaneous
  Country: US (occurrence: US)
  Receive Date: 20130102
  Receipt Date: 20130107
  Transmission Date: 20140127
  Serious: Yes (Death, Other)
  Sender: FDA-Public Use
  Company Number: US-GILEAD-2012-0067080

PATIENT
  Sex: Female

DRUGS (7)
  1. LETAIRIS [Suspect]
     Indication: PULMONARY HYPERTENSION
     Dosage: 5 MG, QD
     Route: 048
     Dates: start: 20121109, end: 20121213
  2. LETAIRIS [Suspect]
     Indication: INTERSTITIAL LUNG DISEASE
  3. LETAIRIS [Suspect]
     Indication: PULMONARY FIBROSIS
  4. LETAIRIS [Suspect]
     Indication: SJOGREN^S SYNDROME
  5. LETAIRIS [Suspect]
     Indication: COLLAGEN-VASCULAR DISEASE
  6. REVATIO [Concomitant]
  7. ENBREL [Concomitant]

REACTIONS (2)
  - Respiratory failure [Fatal]
  - Pulmonary arterial hypertension [Unknown]
